FAERS Safety Report 9434926 (Version 1)
Quarter: 2013Q3

REPORT INFORMATION
  Report Type: Spontaneous
  Country: IT (occurrence: IT)
  Receive Date: 20130801
  Receipt Date: 20130801
  Transmission Date: 20140515
  Serious: Yes (Other)
  Sender: FDA-Public Use
  Company Number: IT-ASTRAZENECA-2013SE56741

PATIENT
  Age: 31456 Day
  Sex: Female

DRUGS (9)
  1. SEROQUEL [Suspect]
     Route: 048
     Dates: start: 20130603
  2. REMINYL [Suspect]
     Route: 065
  3. TRITTICO [Suspect]
     Route: 048
     Dates: start: 20130603, end: 20130607
  4. CITALOPRAM [Concomitant]
     Route: 048
  5. ALPRAZOLAM [Concomitant]
     Route: 048
  6. ENALAPRIL [Concomitant]
  7. SOLDESAM [Concomitant]
     Dosage: 0.2% SOLUTION FOR ORAL DROPS
     Route: 048
  8. LANSOX [Concomitant]
  9. DILZENE [Concomitant]

REACTIONS (3)
  - Apraxia [Recovering/Resolving]
  - Dysstasia [Recovering/Resolving]
  - Sopor [Recovering/Resolving]
